FAERS Safety Report 19247602 (Version 1)
Quarter: 2021Q2

REPORT INFORMATION
  Report Type: Spontaneous
  Country: US (occurrence: US)
  Receive Date: 20210512
  Receipt Date: 20210512
  Transmission Date: 20210717
  Serious: Yes (Disabling)
  Sender: FDA-Public Use
  Company Number: None

PATIENT
  Age: 60 Year
  Sex: Female
  Weight: 92.25 kg

DRUGS (1)
  1. NP THYROID [Suspect]
     Active Substance: LEVOTHYROXINE\LIOTHYRONINE
     Indication: AUTOIMMUNE THYROIDITIS
     Dosage: ?          QUANTITY:60 TABLET(S);?
     Dates: start: 20210101

REACTIONS (6)
  - Blood pressure fluctuation [None]
  - Fatigue [None]
  - Alopecia [None]
  - Swelling [None]
  - Weight increased [None]
  - Nail disorder [None]

NARRATIVE: CASE EVENT DATE: 20210501
